FAERS Safety Report 11444487 (Version 1)
Quarter: 2015Q3

REPORT INFORMATION
  Report Type: Spontaneous
  Country: US (occurrence: US)
  Receive Date: 20150902
  Receipt Date: 20150902
  Transmission Date: 20151125
  Serious: Yes (Hospitalization)
  Sender: FDA-Public Use
  Company Number: US-009507513-1508USA011562

PATIENT
  Age: 47 Year
  Sex: Male

DRUGS (3)
  1. BRILINTA [Interacting]
     Active Substance: TICAGRELOR
     Dosage: UNK
  2. ASPIRIN. [Interacting]
     Active Substance: ASPIRIN
     Dosage: UNK
  3. ZONTIVITY [Suspect]
     Active Substance: VORAPAXAR SULFATE
     Indication: ISCHAEMIC HEART DISEASE PROPHYLAXIS
     Dosage: 2.08 MG, DAILY
     Route: 048
     Dates: start: 201504

REACTIONS (4)
  - Haemoglobin decreased [Not Recovered/Not Resolved]
  - Drug interaction [Not Recovered/Not Resolved]
  - Malaise [Not Recovered/Not Resolved]
  - General physical condition abnormal [Not Recovered/Not Resolved]

NARRATIVE: CASE EVENT DATE: 2015
